FAERS Safety Report 23101284 (Version 1)
Quarter: 2023Q4

REPORT INFORMATION
  Report Type: Spontaneous
  Country: JP (occurrence: JP)
  Receive Date: 20231024
  Receipt Date: 20231024
  Transmission Date: 20240110
  Serious: Yes (Other)
  Sender: FDA-Public Use
  Company Number: JP-PFIZER INC-PV202300160167

PATIENT
  Age: 75 Year
  Sex: Male

DRUGS (2)
  1. BOSULIF [Suspect]
     Active Substance: BOSUTINIB MONOHYDRATE
     Indication: Chronic myeloid leukaemia
     Dosage: 100 MG, 2X/DAY
     Route: 048
     Dates: start: 20220907
  2. BOSULIF [Suspect]
     Active Substance: BOSUTINIB MONOHYDRATE
     Dosage: 3 DF
     Route: 048
     Dates: start: 20220921, end: 20221005

REACTIONS (8)
  - Second primary malignancy [Recovering/Resolving]
  - Lip neoplasm [Recovering/Resolving]
  - Rash [Recovering/Resolving]
  - Pigmentation disorder [Recovering/Resolving]
  - Erythema [Recovering/Resolving]
  - Decubitus ulcer [Recovering/Resolving]
  - Eczema asteatotic [Recovering/Resolving]
  - Off label use [Unknown]

NARRATIVE: CASE EVENT DATE: 20220101
